FAERS Safety Report 9054801 (Version 3)
Quarter: 2013Q2

REPORT INFORMATION
  Report Type: Report from Study
  Country: US (occurrence: US)
  Receive Date: 20130208
  Receipt Date: 20130430
  Transmission Date: 20140414
  Serious: Yes (Hospitalization, Other)
  Sender: FDA-Public Use
  Company Number: PHHY2012US126690

PATIENT
  Age: 7 Year
  Sex: Male

DRUGS (9)
  1. AFINITOR [Suspect]
     Dosage: 10 MG, QD
     Route: 048
     Dates: start: 20120404, end: 20121219
  2. AFINITOR [Suspect]
     Dosage: 10 MG, QD
     Route: 048
     Dates: start: 20121226
  3. AFINITOR [Suspect]
     Dates: start: 20130304
  4. CLONAZEPAM [Concomitant]
  5. CLONIDINE [Concomitant]
  6. FOCALIN [Concomitant]
  7. TRILEPTAL [Concomitant]
  8. RISPERDAL [Concomitant]
  9. LISINOPRIL [Concomitant]

REACTIONS (11)
  - Pneumonia [Unknown]
  - Cough [Unknown]
  - Pyrexia [Unknown]
  - Oppositional defiant disorder [Recovered/Resolved]
  - Depression [Recovered/Resolved]
  - Influenza [Recovered/Resolved]
  - Rectal haemorrhage [Unknown]
  - Croup infectious [Unknown]
  - Diarrhoea [Unknown]
  - Constipation [Unknown]
  - Asthma [Unknown]
